FAERS Safety Report 24004618 (Version 2)
Quarter: 2024Q3

REPORT INFORMATION
  Report Type: Spontaneous
  Country: US (occurrence: US)
  Receive Date: 20240624
  Receipt Date: 20240926
  Transmission Date: 20241016
  Serious: No
  Sender: VIIV
  Company Number: US-ViiV Healthcare Limited-112782

PATIENT
  Age: 47 Year
  Sex: Female

DRUGS (3)
  1. CABENUVA [Suspect]
     Active Substance: CABOTEGRAVIR\RILPIVIRINE
     Indication: Product used for unknown indication
     Dosage: UNK,600/900
  2. CABENUVA [Suspect]
     Active Substance: CABOTEGRAVIR\RILPIVIRINE
  3. CABENUVA [Suspect]
     Active Substance: CABOTEGRAVIR\RILPIVIRINE

REACTIONS (2)
  - Inappropriate schedule of product administration [Unknown]
  - Product complaint [Unknown]

NARRATIVE: CASE EVENT DATE: 20240614
